FAERS Safety Report 6934577-9 (Version None)
Quarter: 2010Q3

REPORT INFORMATION
  Report Type: 
  Country: None (occurrence: None)
  Receive Date: 20100820
  Receipt Date: 20100812
  Transmission Date: 20110219
  Serious: Yes (Hospitalization)
  Sender: FDA-Public Use
  Company Number: US-US-EMD SERONO, INC.-7013243

PATIENT
  Sex: Female
  Weight: 59 kg

DRUGS (12)
  1. REBIF [Suspect]
     Indication: MULTIPLE SCLEROSIS
     Route: 058
     Dates: start: 20100323, end: 20100513
  2. REBIF [Suspect]
     Route: 058
     Dates: start: 20100628
  3. WELLBUTRIN XL [Concomitant]
     Dates: end: 20100513
  4. PERCOCET [Concomitant]
     Dates: end: 20100513
  5. AMBIEN CR [Concomitant]
     Dates: end: 20100513
  6. ASPIRIN [Concomitant]
     Dates: end: 20100513
  7. FUROSEMIDE [Concomitant]
     Dates: end: 20100513
  8. BACLOFEN [Concomitant]
     Dates: end: 20100513
  9. ROPINIROLE [Concomitant]
     Dates: end: 20100513
  10. SEPTRA DS [Concomitant]
     Dates: end: 20100513
  11. BONIVA [Concomitant]
     Dates: end: 20100513
  12. DIAZEPAM [Concomitant]
     Dates: end: 20100513

REACTIONS (8)
  - CEREBROVASCULAR ACCIDENT [None]
  - EOSINOPHILIA [None]
  - MALAISE [None]
  - MENTAL STATUS CHANGES [None]
  - MULTIPLE SCLEROSIS RELAPSE [None]
  - PAIN [None]
  - RASH ERYTHEMATOUS [None]
  - SINUSITIS [None]
